FAERS Safety Report 5094456-1 (Version None)
Quarter: 2006Q3

REPORT INFORMATION
  Report Type: 
  Country: None (occurrence: None)
  Receive Date: 20060829
  Receipt Date: 20060823
  Transmission Date: 20061208
  Serious: Yes (Death, Life-Threatening, Hospitalization)
  Sender: FDA-Public Use
  Company Number: ITWYE774424AUG06

PATIENT
  Age: 65 Year
  Sex: Female

DRUGS (2)
  1. SIROLIMUS (SIROLIMUS, TABLET) [Suspect]
     Indication: PROPHYLAXIS AGAINST TRANSPLANT REJECTION
     Dosage: 1 MG 1X PER 1 DAY, ORAL; 3 MG 1X PER 1 DAY, ORAL
     Route: 048
     Dates: start: 20060708, end: 20060708
  2. SIROLIMUS (SIROLIMUS, TABLET) [Suspect]
     Indication: PROPHYLAXIS AGAINST TRANSPLANT REJECTION
     Dosage: 1 MG 1X PER 1 DAY, ORAL; 3 MG 1X PER 1 DAY, ORAL
     Route: 048
     Dates: start: 20060712, end: 20060725

REACTIONS (7)
  - CEREBRAL HAEMORRHAGE [None]
  - HEPATIC FAILURE [None]
  - LEUKOPENIA [None]
  - MULTI-ORGAN FAILURE [None]
  - PLATELET COUNT DECREASED [None]
  - PULMONARY OEDEMA [None]
  - SEPSIS [None]
